FAERS Safety Report 24032308 (Version 1)
Quarter: 2024Q2

REPORT INFORMATION
  Report Type: Report from Study
  Country: US (occurrence: US)
  Receive Date: 20240630
  Receipt Date: 20240630
  Transmission Date: 20240716
  Serious: Yes (Hospitalization)
  Sender: FDA-Public Use
  Company Number: US-JNJFOC-20240665409

PATIENT

DRUGS (69)
  1. STELARA [Suspect]
     Active Substance: USTEKINUMAB
     Indication: Psoriasis
     Route: 058
  2. STELARA [Suspect]
     Active Substance: USTEKINUMAB
     Indication: Psoriatic arthropathy
  3. STELARA [Suspect]
     Active Substance: USTEKINUMAB
     Indication: Ankylosing spondylitis
  4. STELARA [Suspect]
     Active Substance: USTEKINUMAB
     Indication: Inflammatory bowel disease
  5. STELARA [Suspect]
     Active Substance: USTEKINUMAB
     Indication: Crohn^s disease
  6. STELARA [Suspect]
     Active Substance: USTEKINUMAB
     Indication: Colitis ulcerative
  7. STELARA [Suspect]
     Active Substance: USTEKINUMAB
     Indication: Behcet^s syndrome
  8. STELARA [Suspect]
     Active Substance: USTEKINUMAB
     Indication: Pyoderma gangrenosum
  9. STELARA [Suspect]
     Active Substance: USTEKINUMAB
     Indication: Hidradenitis
  10. STELARA [Suspect]
     Active Substance: USTEKINUMAB
     Indication: Lichen planus
  11. STELARA [Suspect]
     Active Substance: USTEKINUMAB
     Indication: Seborrhoeic dermatitis
  12. STELARA [Suspect]
     Active Substance: USTEKINUMAB
     Indication: Juvenile idiopathic arthritis
  13. STELARA [Suspect]
     Active Substance: USTEKINUMAB
     Indication: Rheumatoid arthritis
  14. TREMFYA [Suspect]
     Active Substance: GUSELKUMAB
     Indication: Psoriasis
     Route: 065
  15. TREMFYA [Suspect]
     Active Substance: GUSELKUMAB
     Indication: Psoriatic arthropathy
  16. TREMFYA [Suspect]
     Active Substance: GUSELKUMAB
     Indication: Ankylosing spondylitis
  17. TREMFYA [Suspect]
     Active Substance: GUSELKUMAB
     Indication: Inflammatory bowel disease
  18. TREMFYA [Suspect]
     Active Substance: GUSELKUMAB
     Indication: Crohn^s disease
  19. TREMFYA [Suspect]
     Active Substance: GUSELKUMAB
     Indication: Colitis ulcerative
  20. TREMFYA [Suspect]
     Active Substance: GUSELKUMAB
     Indication: Behcet^s syndrome
  21. TREMFYA [Suspect]
     Active Substance: GUSELKUMAB
     Indication: Pyoderma gangrenosum
  22. TREMFYA [Suspect]
     Active Substance: GUSELKUMAB
     Indication: Hidradenitis
  23. TREMFYA [Suspect]
     Active Substance: GUSELKUMAB
     Indication: Lichen planus
  24. TREMFYA [Suspect]
     Active Substance: GUSELKUMAB
     Indication: Seborrhoeic dermatitis
  25. TREMFYA [Suspect]
     Active Substance: GUSELKUMAB
     Indication: Juvenile idiopathic arthritis
  26. TREMFYA [Suspect]
     Active Substance: GUSELKUMAB
     Indication: Rheumatoid arthritis
  27. SECUKINUMAB [Suspect]
     Active Substance: SECUKINUMAB
     Indication: Psoriasis
     Route: 065
  28. SECUKINUMAB [Suspect]
     Active Substance: SECUKINUMAB
     Indication: Psoriatic arthropathy
  29. SECUKINUMAB [Suspect]
     Active Substance: SECUKINUMAB
     Indication: Ankylosing spondylitis
  30. SECUKINUMAB [Suspect]
     Active Substance: SECUKINUMAB
     Indication: Inflammatory bowel disease
  31. SECUKINUMAB [Suspect]
     Active Substance: SECUKINUMAB
     Indication: Crohn^s disease
  32. SECUKINUMAB [Suspect]
     Active Substance: SECUKINUMAB
     Indication: Colitis ulcerative
  33. SECUKINUMAB [Suspect]
     Active Substance: SECUKINUMAB
     Indication: Behcet^s syndrome
  34. SECUKINUMAB [Suspect]
     Active Substance: SECUKINUMAB
     Indication: Pyoderma gangrenosum
  35. SECUKINUMAB [Suspect]
     Active Substance: SECUKINUMAB
     Indication: Hidradenitis
  36. SECUKINUMAB [Suspect]
     Active Substance: SECUKINUMAB
     Indication: Lichen planus
  37. SECUKINUMAB [Suspect]
     Active Substance: SECUKINUMAB
     Indication: Seborrhoeic dermatitis
  38. SECUKINUMAB [Suspect]
     Active Substance: SECUKINUMAB
     Indication: Juvenile idiopathic arthritis
  39. SECUKINUMAB [Suspect]
     Active Substance: SECUKINUMAB
     Indication: Rheumatoid arthritis
  40. IXEKIZUMAB [Suspect]
     Active Substance: IXEKIZUMAB
     Indication: Psoriasis
     Route: 065
  41. IXEKIZUMAB [Suspect]
     Active Substance: IXEKIZUMAB
     Indication: Psoriatic arthropathy
  42. IXEKIZUMAB [Suspect]
     Active Substance: IXEKIZUMAB
     Indication: Ankylosing spondylitis
  43. IXEKIZUMAB [Suspect]
     Active Substance: IXEKIZUMAB
     Indication: Inflammatory bowel disease
  44. IXEKIZUMAB [Suspect]
     Active Substance: IXEKIZUMAB
     Indication: Crohn^s disease
  45. IXEKIZUMAB [Suspect]
     Active Substance: IXEKIZUMAB
     Indication: Colitis ulcerative
  46. IXEKIZUMAB [Suspect]
     Active Substance: IXEKIZUMAB
     Indication: Behcet^s syndrome
  47. IXEKIZUMAB [Suspect]
     Active Substance: IXEKIZUMAB
     Indication: Pyoderma gangrenosum
  48. IXEKIZUMAB [Suspect]
     Active Substance: IXEKIZUMAB
     Indication: Hidradenitis
  49. IXEKIZUMAB [Suspect]
     Active Substance: IXEKIZUMAB
     Indication: Lichen planus
  50. IXEKIZUMAB [Suspect]
     Active Substance: IXEKIZUMAB
     Indication: Seborrhoeic dermatitis
  51. IXEKIZUMAB [Suspect]
     Active Substance: IXEKIZUMAB
     Indication: Juvenile idiopathic arthritis
  52. IXEKIZUMAB [Suspect]
     Active Substance: IXEKIZUMAB
     Indication: Rheumatoid arthritis
  53. RISANKIZUMAB [Suspect]
     Active Substance: RISANKIZUMAB
     Indication: Psoriasis
     Route: 065
  54. RISANKIZUMAB [Suspect]
     Active Substance: RISANKIZUMAB
     Indication: Psoriatic arthropathy
  55. RISANKIZUMAB [Suspect]
     Active Substance: RISANKIZUMAB
     Indication: Ankylosing spondylitis
  56. RISANKIZUMAB [Suspect]
     Active Substance: RISANKIZUMAB
     Indication: Inflammatory bowel disease
  57. RISANKIZUMAB [Suspect]
     Active Substance: RISANKIZUMAB
     Indication: Crohn^s disease
  58. RISANKIZUMAB [Suspect]
     Active Substance: RISANKIZUMAB
     Indication: Colitis ulcerative
  59. RISANKIZUMAB [Suspect]
     Active Substance: RISANKIZUMAB
     Indication: Behcet^s syndrome
  60. RISANKIZUMAB [Suspect]
     Active Substance: RISANKIZUMAB
     Indication: Pyoderma gangrenosum
  61. RISANKIZUMAB [Suspect]
     Active Substance: RISANKIZUMAB
     Indication: Hidradenitis
  62. RISANKIZUMAB [Suspect]
     Active Substance: RISANKIZUMAB
     Indication: Lichen planus
  63. RISANKIZUMAB [Suspect]
     Active Substance: RISANKIZUMAB
     Indication: Seborrhoeic dermatitis
  64. RISANKIZUMAB [Suspect]
     Active Substance: RISANKIZUMAB
     Indication: Juvenile idiopathic arthritis
  65. RISANKIZUMAB [Suspect]
     Active Substance: RISANKIZUMAB
     Indication: Rheumatoid arthritis
  66. CYCLOSPORINE [Concomitant]
     Active Substance: CYCLOSPORINE
     Route: 065
  67. METHOTREXATE [Concomitant]
     Active Substance: METHOTREXATE
     Route: 065
  68. MYCOPHENOLATE MOFETIL [Concomitant]
     Active Substance: MYCOPHENOLATE MOFETIL
     Route: 065
  69. TACROLIMUS [Concomitant]
     Active Substance: TACROLIMUS

REACTIONS (6)
  - Aspergillus infection [Unknown]
  - Histoplasmosis [Unknown]
  - Pneumocystis jirovecii pneumonia [Unknown]
  - Candida infection [Unknown]
  - Coccidioidomycosis [Unknown]
  - Fungal infection [Unknown]
